FAERS Safety Report 6123701-6 (Version None)
Quarter: 2009Q1

REPORT INFORMATION
  Report Type: 
  Country: None (occurrence: None)
  Receive Date: 20090319
  Receipt Date: 20090307
  Transmission Date: 20090719
  Serious: Yes (Other)
  Sender: FDA-Public Use
  Company Number: US-WYE-H08524109

PATIENT
  Sex: Female

DRUGS (2)
  1. EFFEXOR XR [Suspect]
     Route: 048
     Dates: end: 20090201
  2. PROTONIX [Suspect]
     Dates: end: 20090201

REACTIONS (4)
  - DEPRESSION [None]
  - DRUG WITHDRAWAL SYNDROME [None]
  - HOMICIDAL IDEATION [None]
  - SUICIDAL IDEATION [None]
